FAERS Safety Report 4530898-8 (Version None)
Quarter: 2004Q4

REPORT INFORMATION
  Report Type: 
  Country: None (occurrence: None)
  Receive Date: 20041206
  Receipt Date: 20040907
  Transmission Date: 20050328
  Serious: No
  Sender: FDA-Public Use
  Company Number: USA040977502

PATIENT
  Age: 56 Year
  Sex: Female
  Weight: 77 kg

DRUGS (2)
  1. CYMBALTA [Suspect]
     Indication: DEPRESSION
     Dosage: 30 MG/1 IN THE MORNING
  2. LEVOXYL [Concomitant]

REACTIONS (14)
  - ABDOMINAL PAIN UPPER [None]
  - DISORIENTATION [None]
  - DIZZINESS [None]
  - EYELID OEDEMA [None]
  - FALL [None]
  - FEELING ABNORMAL [None]
  - HEADACHE [None]
  - INSOMNIA [None]
  - LETHARGY [None]
  - NIGHT SWEATS [None]
  - OEDEMA PERIPHERAL [None]
  - RESTLESSNESS [None]
  - SOMNOLENCE [None]
  - STOMACH DISCOMFORT [None]
